FAERS Safety Report 7725186-2 (Version None)
Quarter: 2011Q3

REPORT INFORMATION
  Report Type: 
  Country: None (occurrence: None)
  Receive Date: 20110901
  Receipt Date: 20110901
  Transmission Date: 20111222
  Serious: Yes (Hospitalization, Other)
  Sender: FDA-Public Use
  Company Number: US-ABBOTT-11P-163-0717396-00

PATIENT
  Sex: Female
  Weight: 70 kg

DRUGS (51)
  1. CARBIDOPA + LEVODOPA [Concomitant]
     Indication: PARKINSON'S DISEASE
     Dosage: 25/100
     Dates: start: 20110223, end: 20110313
  2. ASPIRIN [Concomitant]
     Indication: CARDIOVASCULAR EVENT PROPHYLAXIS
     Route: 048
     Dates: start: 20110322
  3. THERATEARS [Concomitant]
     Indication: MEDICAL DIET
     Route: 048
     Dates: start: 20110412, end: 20110415
  4. PHENOSODIUM PHENOLATE MOUTHWASH [Concomitant]
     Indication: DRY MOUTH
     Route: 048
     Dates: start: 20080101
  5. GLUCOSAMINE SULFATE [Concomitant]
     Indication: OSTEOARTHRITIS
     Route: 048
     Dates: start: 20100411, end: 20110313
  6. FOLIC ACID [Concomitant]
     Dates: start: 20110330
  7. THERATEARS [Concomitant]
     Indication: DRY EYE
     Dates: start: 20110413, end: 20110415
  8. HYDROCODONE BITARTRATE AND ACETAMINOPHEN [Suspect]
     Indication: PAIN
     Dates: start: 20110412, end: 20110416
  9. AMITIZA [Suspect]
     Indication: PRODUCT USED FOR UNKNOWN INDICATION
     Dates: end: 20110408
  10. DESOWEN [Concomitant]
     Indication: DERMATITIS
     Route: 061
     Dates: start: 20110401, end: 20110415
  11. VITAMIN D [Concomitant]
     Indication: MEDICAL DIET
     Route: 048
     Dates: start: 20090410, end: 20110313
  12. VITAMIN D [Concomitant]
     Dates: start: 20110409, end: 20110411
  13. SKELAXIN [Concomitant]
     Indication: MUSCLE SPASMS
     Dates: start: 20110412
  14. ASCORBIC ACID [Concomitant]
     Indication: MEDICAL DIET
     Route: 048
     Dates: start: 20100411, end: 20110313
  15. PANTOPRAZOLE [Concomitant]
     Route: 048
     Dates: start: 20110413, end: 20110415
  16. OMEPRAZOLE [Concomitant]
     Indication: GASTROOESOPHAGEAL REFLUX DISEASE
     Route: 048
     Dates: start: 20100411, end: 20110313
  17. SULFATRIM-DS [Concomitant]
     Indication: URINARY TRACT INFECTION
     Dosage: 800/160
     Dates: start: 20110310, end: 20110314
  18. METAXALONE [Concomitant]
     Indication: MUSCLE SPASMS
     Dates: start: 20110110, end: 20110317
  19. METAXALONE [Concomitant]
     Dates: start: 20110318, end: 20110410
  20. METAXALONE [Concomitant]
     Dates: start: 20110412, end: 20110415
  21. MELOXICAM [Concomitant]
     Indication: BACK PAIN
     Route: 048
     Dates: start: 20110214
  22. GLUCOSAMINE SULFATE [Concomitant]
     Indication: MEDICAL DIET
     Route: 048
     Dates: start: 20110412, end: 20110415
  23. RECLAST [Concomitant]
     Indication: OSTEOARTHRITIS
     Route: 042
     Dates: start: 20091103
  24. SARNA ANTI-ITCH LOTION (MENTHOL AND CAMPHOR) [Concomitant]
     Indication: RASH
     Dosage: AS REQUIRED
     Route: 061
     Dates: start: 20091016
  25. BACLOFEN [Concomitant]
     Indication: BLADDER DISORDER
     Route: 048
     Dates: start: 20110408, end: 20110418
  26. VITAMIN B-12 [Concomitant]
     Indication: NEUROPATHY PERIPHERAL
     Route: 060
     Dates: start: 20100701, end: 20110313
  27. VITAMIN B-12 [Concomitant]
     Dates: start: 20110322
  28. FOLIC ACID [Concomitant]
     Indication: MEDICAL DIET
     Route: 048
     Dates: start: 20100411, end: 20110312
  29. MAGNESIUM [Concomitant]
     Indication: MEDICAL DIET
     Route: 048
     Dates: start: 19900101, end: 20110313
  30. CHARCOAL ACTIVATED [Concomitant]
     Indication: PRODUCT USED FOR UNKNOWN INDICATION
     Dates: start: 20110212
  31. LACTULOSE [Concomitant]
     Indication: CONSTIPATION
     Dates: start: 20110328
  32. MULTI-VITAMIN [Concomitant]
     Indication: MEDICAL DIET
     Dates: start: 20110330, end: 20110410
  33. ZOFRAN [Concomitant]
     Route: 048
     Dates: start: 20110415, end: 20110415
  34. DOCUSATE SODIUM [Concomitant]
     Indication: CONSTIPATION
     Route: 048
     Dates: start: 20110412
  35. CARBIDOPA + LEVODOPA [Concomitant]
     Dates: start: 20110404
  36. DICLOFENAC EPOLAMINUM [Concomitant]
     Indication: MUSCLE SPASMS
     Dates: start: 20110413, end: 20110416
  37. ZINC [Concomitant]
     Indication: MEDICAL DIET
     Route: 048
     Dates: start: 19900101, end: 20110313
  38. LACTULOSE [Concomitant]
     Route: 048
     Dates: start: 20110409
  39. MULTI-VITAMIN [Concomitant]
     Indication: MACULAR DEGENERATION
  40. MULTI-VITAMIN [Concomitant]
     Dates: start: 20110413
  41. ZOFRAN [Concomitant]
     Indication: NAUSEA
     Route: 048
     Dates: start: 20110330, end: 20110410
  42. HYDROCODONE BITARTRATE AND ACETAMINOPHEN [Suspect]
     Indication: BACK PAIN
     Dosage: 5/500 QID AS NEEDED
     Route: 048
     Dates: start: 20110212, end: 20110312
  43. CARBOXYMETHYLCELLULOSE SODIUM [Concomitant]
     Indication: DRY EYE
     Route: 047
     Dates: start: 20110201, end: 20110301
  44. DICLOFENAC EPOLAMINUM [Concomitant]
     Indication: BACK PAIN
     Dosage: PATCH
     Route: 062
     Dates: start: 20110126, end: 20110321
  45. DESOWEN [Concomitant]
     Indication: SEBORRHOEA
     Dosage: AS REQUIRED
     Route: 061
     Dates: start: 20090723, end: 20110313
  46. BENADRYL [Concomitant]
     Indication: INSOMNIA
     Route: 048
     Dates: start: 20100628, end: 20110312
  47. VITAMIN D [Concomitant]
     Dates: start: 20110411, end: 20110418
  48. CALCIUM CARBONATE [Concomitant]
     Indication: MEDICAL DIET
     Dates: start: 19900101, end: 20110313
  49. PANTOPRAZOLE [Concomitant]
     Indication: GASTROOESOPHAGEAL REFLUX DISEASE
     Route: 048
     Dates: start: 20110329, end: 20110410
  50. CALCIUM MAGNESIUM [Concomitant]
     Indication: MEDICAL DIET
     Route: 048
     Dates: start: 20110413, end: 20110415
  51. ZOLEDRONIC ACID [Concomitant]
     Indication: OSTEOPOROSIS
     Route: 042
     Dates: start: 20091103

REACTIONS (24)
  - ABNORMAL DREAMS [None]
  - HYPOPHAGIA [None]
  - CONFUSIONAL STATE [None]
  - HYPONATRAEMIA [None]
  - ILEUS [None]
  - ADRENAL INSUFFICIENCY [None]
  - VOMITING [None]
  - POSTOPERATIVE ILEUS [None]
  - URINARY TRACT INFECTION [None]
  - MICTURITION URGENCY [None]
  - URINE OUTPUT INCREASED [None]
  - FALL [None]
  - EXCORIATION [None]
  - DRY MOUTH [None]
  - DYSURIA [None]
  - URINARY RETENTION [None]
  - NERVOUSNESS [None]
  - ANXIETY [None]
  - DIZZINESS POSTURAL [None]
  - HALLUCINATION [None]
  - ABDOMINAL PAIN [None]
  - NAUSEA [None]
  - CONSTIPATION [None]
  - PAIN [None]
